FAERS Safety Report 4280906-7 (Version None)
Quarter: 2004Q1

REPORT INFORMATION
  Report Type: 
  Country: None (occurrence: None)
  Receive Date: 20040129
  Receipt Date: 20031217
  Transmission Date: 20041129
  Serious: Yes (Life-Threatening)
  Sender: FDA-Public Use
  Company Number: FR-GLAXOSMITHKLINE-B0317943A

PATIENT
  Age: 57 Year
  Sex: Male
  Weight: 57 kg

DRUGS (7)
  1. VENTOLIN [Suspect]
     Route: 055
  2. SYMBICORT [Suspect]
     Dosage: 2UNIT TWICE PER DAY
     Route: 055
  3. SOLUPRED 20 MG [Suspect]
     Dosage: 1UNIT PER DAY
     Route: 048
  4. DIDRONEL [Suspect]
     Dosage: 400MG PER DAY
     Route: 048
     Dates: start: 20000101
  5. OGAST [Suspect]
     Dosage: 1UNIT PER DAY
     Route: 048
  6. CACIT VITAMINE D3 [Suspect]
     Dosage: 1UNIT PER DAY
     Route: 065
     Dates: start: 20000101
  7. FORADIL [Concomitant]
     Route: 065

REACTIONS (11)
  - AGITATION [None]
  - ASTHMA [None]
  - BRADYCARDIA [None]
  - BRONCHOSPASM [None]
  - BUNDLE BRANCH BLOCK RIGHT [None]
  - CHEST X-RAY ABNORMAL [None]
  - CHONDROCALCINOSIS [None]
  - CHRONIC OBSTRUCTIVE AIRWAYS DISEASE EXACERBATED [None]
  - CYANOSIS [None]
  - SCIATICA [None]
  - TREATMENT NONCOMPLIANCE [None]
